FAERS Safety Report 14878766 (Version 1)
Quarter: 2018Q2

REPORT INFORMATION
  Report Type: Spontaneous
  Country: IN (occurrence: IN)
  Receive Date: 20180511
  Receipt Date: 20180511
  Transmission Date: 20180711
  Serious: Yes (Other)
  Sender: FDA-Public Use
  Company Number: IN-ROCHE-2121197

PATIENT
  Age: 24 Year
  Sex: Female

DRUGS (4)
  1. HERCLON [Suspect]
     Active Substance: TRASTUZUMAB
     Indication: BREAST CANCER
     Route: 065
  2. PACLITAXEL. [Suspect]
     Active Substance: PACLITAXEL
     Indication: BREAST CANCER
     Route: 065
  3. CAPECITABINE. [Suspect]
     Active Substance: CAPECITABINE
     Indication: BREAST CANCER
     Route: 065
  4. LAPATINIB [Concomitant]
     Active Substance: LAPATINIB

REACTIONS (4)
  - Bone pain [Unknown]
  - Metastases to bone [Unknown]
  - Bedridden [Unknown]
  - Quality of life decreased [Unknown]
